FAERS Safety Report 25993903 (Version 1)
Quarter: 2025Q4

REPORT INFORMATION
  Report Type: Spontaneous
  Country: US (occurrence: US)
  Receive Date: 20251104
  Receipt Date: 20251104
  Transmission Date: 20260118
  Serious: No
  Sender: RANBAXY
  Company Number: US-MIMS-SUN-2025-USA-53295

PATIENT
  Sex: Female

DRUGS (2)
  1. FLUOCINOLONE [Suspect]
     Active Substance: FLUOCINOLONE
     Indication: Dandruff
     Dosage: UNK
     Route: 061
  2. FLUOCINOLONE [Suspect]
     Active Substance: FLUOCINOLONE
     Indication: Pruritus

REACTIONS (3)
  - Product leakage [Unknown]
  - Wrong dose [Unknown]
  - Product physical issue [Unknown]
